FAERS Safety Report 22648625 (Version 12)
Quarter: 2025Q2

REPORT INFORMATION
  Report Type: Report from Study
  Country: CA (occurrence: CA)
  Receive Date: 20230628
  Receipt Date: 20250421
  Transmission Date: 20250716
  Serious: Yes (Hospitalization, Other)
  Sender: JOHNSON AND JOHNSON
  Company Number: CA-JNJFOC-20230658048

PATIENT
  Age: 54 Year
  Sex: Female
  Weight: 122 kg

DRUGS (5)
  1. REMICADE [Suspect]
     Active Substance: INFLIXIMAB
     Indication: Crohn^s disease
     Route: 041
     Dates: start: 20170825
  2. REMICADE [Suspect]
     Active Substance: INFLIXIMAB
     Route: 041
     Dates: start: 20170825
  3. REMICADE [Suspect]
     Active Substance: INFLIXIMAB
     Dosage: PATIENT RECEIVED LAST DOSE ON 26-MAY-2023
     Route: 041
     Dates: start: 20170825
  4. REMICADE [Suspect]
     Active Substance: INFLIXIMAB
     Route: 041
     Dates: start: 20170825
  5. CEFADROXIL [Concomitant]
     Active Substance: CEFADROXIL
     Dosage: 2 PILLS,  FINAL DOSE ON SUNDAY 20-APR-2025

REACTIONS (9)
  - Cellulitis [Recovering/Resolving]
  - Abscess [Recovering/Resolving]
  - Mastitis [Recovering/Resolving]
  - Invasive ductal breast carcinoma [Unknown]
  - Intraductal proliferative breast lesion [Unknown]
  - Nephrolithiasis [Recovered/Resolved]
  - Localised infection [Not Recovered/Not Resolved]
  - Breast calcifications [Unknown]
  - Vaginal haemorrhage [Unknown]

NARRATIVE: CASE EVENT DATE: 20230502
